FAERS Safety Report 6367483-1 (Version None)
Quarter: 2009Q3

REPORT INFORMATION
  Report Type: 
  Country: None (occurrence: None)
  Receive Date: 20090921
  Receipt Date: 20090909
  Transmission Date: 20100115
  Serious: Yes (Other)
  Sender: FDA-Public Use
  Company Number: US-WYE-H10927709

PATIENT
  Sex: Female
  Weight: 72.64 kg

DRUGS (5)
  1. PRISTIQ [Suspect]
     Indication: DEPRESSION
     Route: 048
     Dates: start: 20090715, end: 20090911
  2. PRISTIQ [Suspect]
     Route: 048
     Dates: start: 20090914
  3. PRILOSEC [Concomitant]
  4. ERGOCALCIFEROL [Concomitant]
  5. ESTROGEN NOS [Concomitant]

REACTIONS (12)
  - CONDITION AGGRAVATED [None]
  - CRYING [None]
  - DECREASED APPETITE [None]
  - DEPRESSION [None]
  - DRUG WITHDRAWAL SYNDROME [None]
  - FATIGUE [None]
  - FOOD INTERACTION [None]
  - HYPERHIDROSIS [None]
  - NOCTURIA [None]
  - POLYDIPSIA [None]
  - SUICIDAL IDEATION [None]
  - VISION BLURRED [None]
